FAERS Safety Report 25026146 (Version 2)
Quarter: 2025Q2

REPORT INFORMATION
  Report Type: Spontaneous
  Country: US (occurrence: US)
  Receive Date: 20250301
  Receipt Date: 20250421
  Transmission Date: 20250717
  Serious: No
  Sender: ALEXION PHARMACEUTICALS
  Company Number: US-AstraZeneca-CH-00814420AP

PATIENT
  Age: 80 Year

DRUGS (1)
  1. BYDUREON BCISE [Suspect]
     Active Substance: EXENATIDE
     Dosage: 2 MILLIGRAM, QW
     Route: 065

REACTIONS (7)
  - Injection site pain [Unknown]
  - Needle issue [Unknown]
  - Device delivery system issue [Unknown]
  - Incorrect dose administered by device [Unknown]
  - Device issue [Unknown]
  - Accidental exposure to product [Unknown]
  - Drug dose omission by device [Unknown]
